FAERS Safety Report 18247835 (Version 1)
Quarter: 2020Q3

REPORT INFORMATION
  Report Type: Spontaneous
  Country: US (occurrence: US)
  Receive Date: 20200909
  Receipt Date: 20200909
  Transmission Date: 20201103
  Serious: No
  Sender: FDA-Public Use
  Company Number: US-MYLANLABS-2020M1072039

PATIENT
  Age: 58 Year
  Sex: Female
  Weight: 50 kg

DRUGS (1)
  1. LIDOCAINE PATCH [Suspect]
     Active Substance: LIDOCAINE
     Indication: MUSCULOSKELETAL PAIN
     Dosage: 5 PERCENT, QD
     Route: 003
     Dates: start: 20200127

REACTIONS (4)
  - Application site rash [Recovered/Resolved]
  - Product adhesion issue [Recovering/Resolving]
  - Product quality issue [Recovering/Resolving]
  - Off label use [Unknown]

NARRATIVE: CASE EVENT DATE: 20200127
